FAERS Safety Report 5705550-3 (Version None)
Quarter: 2008Q2

REPORT INFORMATION
  Report Type: 
  Country: None (occurrence: None)
  Receive Date: 20080415
  Receipt Date: 20080407
  Transmission Date: 20081010
  Serious: Yes (Hospitalization, Other)
  Sender: FDA-Public Use
  Company Number: JP-BAYER-200810283BYL

PATIENT
  Age: 39 Year
  Sex: Female
  Weight: 48 kg

DRUGS (15)
  1. ASPIRIN [Suspect]
     Indication: CARDIAC FAILURE
     Dosage: TOTAL DAILY DOSE: 100 MG  UNIT DOSE: 100 MG
     Route: 048
     Dates: start: 20050611, end: 20050624
  2. LOXONIN [Suspect]
     Indication: SEPSIS
     Dosage: TOTAL DAILY DOSE: 60 MG  UNIT DOSE: 60 MG
     Route: 048
     Dates: start: 20050615, end: 20050617
  3. ALDACTONE [Suspect]
     Indication: CARDIAC FAILURE
     Dosage: TOTAL DAILY DOSE: 25 MG  UNIT DOSE: 25 MG
     Route: 048
     Dates: start: 20050611, end: 20050624
  4. SLOW-K [Suspect]
     Indication: HYPOKALAEMIA
     Dosage: TOTAL DAILY DOSE: 1200 MG  UNIT DOSE: 600 MG
     Route: 048
     Dates: start: 20050614, end: 20050624
  5. PURSENNIDE [Suspect]
     Indication: CONSTIPATION
     Dosage: TOTAL DAILY DOSE: 12 MG  UNIT DOSE: 12 MG
     Route: 048
     Dates: start: 20050614, end: 20070627
  6. MUCOSTA [Concomitant]
     Indication: GASTRITIS
     Dosage: TOTAL DAILY DOSE: 100 MG  UNIT DOSE: 100 MG
     Route: 048
     Dates: start: 20050615, end: 20050617
  7. PL [Concomitant]
     Indication: NASOPHARYNGITIS
     Dosage: TOTAL DAILY DOSE: 3 G  UNIT DOSE: 1 G
     Route: 048
     Dates: start: 20050615, end: 20050617
  8. CLARITHROMYCIN [Concomitant]
     Indication: UPPER RESPIRATORY TRACT INFLAMMATION
     Dosage: TOTAL DAILY DOSE: 400 MG  UNIT DOSE: 200 MG
     Route: 048
     Dates: start: 20050615, end: 20050617
  9. VANCOMYCIN HYDROCHLORIDE [Concomitant]
     Indication: SEPSIS
     Dosage: TOTAL DAILY DOSE: 1.0 G  UNIT DOSE: 0.5 G
     Route: 041
     Dates: start: 20050617, end: 20050624
  10. GENTACIN [Concomitant]
     Indication: PNEUMONIA
     Dosage: TOTAL DAILY DOSE: 120 MG  UNIT DOSE: 60 MG
     Route: 041
     Dates: start: 20050617, end: 20050618
  11. AMIODARONE HCL [Concomitant]
     Dosage: TOTAL DAILY DOSE: 200 MG  UNIT DOSE: 100 MG
     Route: 048
     Dates: start: 20050609, end: 20050620
  12. ARTIST [Concomitant]
     Indication: CARDIAC FAILURE
     Dosage: TOTAL DAILY DOSE: 2.5 MG  UNIT DOSE: 2.5 MG
     Route: 048
     Dates: start: 20050612, end: 20050627
  13. ACECOL [Concomitant]
     Indication: CARDIAC FAILURE
     Dosage: TOTAL DAILY DOSE: 2 MG  UNIT DOSE: 2 MG
     Route: 048
     Dates: start: 20050611, end: 20050624
  14. ACINON [Concomitant]
     Indication: GASTRITIS
     Dosage: TOTAL DAILY DOSE: 150 MG  UNIT DOSE: 150 MG
     Route: 048
     Dates: start: 20050614, end: 20050624
  15. LASIX [Concomitant]
     Indication: CARDIAC FAILURE
     Dosage: TOTAL DAILY DOSE: 40 MG  UNIT DOSE: 20 MG
     Route: 048
     Dates: start: 20050611, end: 20050624

REACTIONS (1)
  - TOXIC EPIDERMAL NECROLYSIS [None]
